FAERS Safety Report 10058651 (Version 1)
Quarter: 2014Q2

REPORT INFORMATION
  Report Type: Spontaneous
  Country: US (occurrence: US)
  Receive Date: 20140404
  Receipt Date: 20140404
  Transmission Date: 20141212
  Serious: No
  Sender: FDA-Public Use
  Company Number: US-PFIZER INC-2014095481

PATIENT
  Age: 57 Year
  Sex: Female
  Weight: 131.52 kg

DRUGS (3)
  1. LYRICA [Suspect]
     Indication: FIBROMYALGIA
     Dosage: UNK
     Dates: start: 2013
  2. LYRICA [Suspect]
     Indication: LYMPHOEDEMA
     Dosage: 100 MG, 4X/DAY
  3. LYRICA [Suspect]
     Dosage: 100 MG, 2X/DAY
     Dates: start: 201403

REACTIONS (1)
  - Pain [Unknown]
